FAERS Safety Report 22254587 (Version 1)
Quarter: 2023Q2

REPORT INFORMATION
  Report Type: Spontaneous
  Country: US (occurrence: US)
  Receive Date: 20230426
  Receipt Date: 20230426
  Transmission Date: 20230721
  Serious: Yes (Other)
  Sender: FDA-Public Use
  Company Number: US-ELI_LILLY_AND_COMPANY-US202304008156

PATIENT
  Age: 70 Year
  Sex: Female
  Weight: 151.95 kg

DRUGS (2)
  1. CYMBALTA [Interacting]
     Active Substance: DULOXETINE HYDROCHLORIDE
     Indication: Pain in extremity
     Dosage: 20 MG, DAILY
     Route: 048
     Dates: start: 202211, end: 202212
  2. BOSUTINIB [Suspect]
     Active Substance: BOSUTINIB
     Indication: Philadelphia positive chronic myeloid leukaemia
     Dosage: 100 MG, TID
     Route: 048
     Dates: start: 202211

REACTIONS (3)
  - Chronic myeloid leukaemia recurrent [Recovering/Resolving]
  - Fluid retention [Unknown]
  - Drug interaction [Recovered/Resolved]

NARRATIVE: CASE EVENT DATE: 20221101
